FAERS Safety Report 4593777-6 (Version None)
Quarter: 2005Q1

REPORT INFORMATION
  Report Type: 
  Country: None (occurrence: None)
  Receive Date: 20050224
  Receipt Date: 20041223
  Transmission Date: 20050727
  Serious: Yes (Other)
  Sender: FDA-Public Use
  Company Number: US-BRISTOL-MYERS SQUIBB COMPANY-12805578

PATIENT
  Age: 15 Year
  Sex: Female

DRUGS (1)
  1. EXCEDRIN (MIGRAINE) [Suspect]
     Indication: DEPRESSION
     Route: 048
     Dates: start: 20041222, end: 20041222

REACTIONS (4)
  - CHEST PAIN [None]
  - NERVOUSNESS [None]
  - OVERDOSE [None]
  - VOMITING [None]
